FAERS Safety Report 19945623 (Version 1)
Quarter: 2021Q4

REPORT INFORMATION
  Report Type: Spontaneous
  Country: DE (occurrence: DE)
  Receive Date: 20211012
  Receipt Date: 20211012
  Transmission Date: 20220303
  Serious: Yes (Hospitalization, Other)
  Sender: FDA-Public Use
  Company Number: DE-ADRED-06593-01

PATIENT
  Age: 68 Year
  Sex: Male
  Weight: 70 kg

DRUGS (15)
  1. CISPLATIN [Suspect]
     Active Substance: CISPLATIN
     Indication: Product used for unknown indication
     Dosage: BY REGIMEN, SOLUTION FOR INJECTION/INFUSION
     Route: 042
  2. PEMETREXED [Suspect]
     Active Substance: PEMETREXED
     Indication: Product used for unknown indication
     Dosage: REDUCED DOSE BY REGIMEN, SOLUTION FOR INJECTION/INFUSION
     Route: 042
  3. FERROUS GLYCINE SULFATE [Concomitant]
     Active Substance: FERROUS GLYCINE SULFATE
     Dosage: 40 MILLIGRAM, BID (40 MG, 1-0-1-0, DRAGEES)
     Route: 048
  4. FOLIC ACID [Concomitant]
     Active Substance: FOLIC ACID
     Dosage: 0.4 MILLIGRAM, QD (0.4 MG, 1-0-0-0, TABLETTEN)
     Route: 048
  5. METOPROLOL [Concomitant]
     Active Substance: METOPROLOL
     Dosage: 47.5 MILLIGRAM, QD (47.5 MG, 1-0-0-0, TABLETTEN)
     Route: 048
  6. PANTOPRAZOLE [Concomitant]
     Active Substance: PANTOPRAZOLE
     Dosage: 20 MILLIGRAM, BID (20 MG, 1-0-1-0, TABLETTEN)
     Route: 048
  7. MIRTAZAPINE [Concomitant]
     Active Substance: MIRTAZAPINE
     Dosage: 15 MILLIGRAM, QD (15 MG, 0-0-0-1, TABLETTEN)
     Route: 048
  8. METAMIZOLE [Concomitant]
     Active Substance: METAMIZOLE
     Dosage: 500 MG, 40-40-40-40, TROPFEN
     Route: 048
  9. OXYCODONE [Concomitant]
     Active Substance: OXYCODONE
     Dosage: 5 MILLIGRAM, PRN (5 MG, AS NEEDED, SUSTAINED-RELEASE TABLETS )
     Route: 048
  10. OXYCODONE [Concomitant]
     Active Substance: OXYCODONE
     Dosage: 20 MILLIGRAM, TID (20 MG, 1-1-0-1, RETARD-TABLETTEN)
     Route: 048
  11. VENLAFAXINE HYDROCHLORIDE [Concomitant]
     Active Substance: VENLAFAXINE HYDROCHLORIDE
     Dosage: 75 MILLIGRAM, QD (75 MG, 1-0-0-0, KAPSELN)
     Route: 048
  12. PREGABALIN [Concomitant]
     Active Substance: PREGABALIN
     Dosage: 150 MILLIGRAM, BID (150 MG, 1-0-1-0, KAPSELN)
     Route: 048
  13. MCP AL [Concomitant]
     Dosage: 10 MILLIGRAM, BID (10 MG, 1-0-1-0, TABLETTEN)
     Route: 048
  14. OXYCODON COMP 1 A PHARMA [Concomitant]
     Dosage: 5|10 MG, 0-0-0-1, RETARD-TABLETTEN
     Route: 048
  15. ETORICOXIB [Concomitant]
     Active Substance: ETORICOXIB
     Dosage: 60 MILLIGRAM, QD (60 MG, 0-1-0-0, TABLETTEN)
     Route: 048

REACTIONS (6)
  - Haematochezia [Unknown]
  - General physical health deterioration [Unknown]
  - Asthenia [Unknown]
  - Nausea [Unknown]
  - Diarrhoea [Unknown]
  - Decreased appetite [Unknown]
